FAERS Safety Report 20622794 (Version 2)
Quarter: 2022Q2

REPORT INFORMATION
  Report Type: Spontaneous
  Country: CZ (occurrence: CZ)
  Receive Date: 20220322
  Receipt Date: 20220401
  Transmission Date: 20220721
  Serious: Yes (Other)
  Sender: FDA-Public Use
  Company Number: CZ-NOVARTISPH-NVSC2022CZ064255

PATIENT
  Age: 75 Year

DRUGS (1)
  1. BEOVU [Suspect]
     Active Substance: BROLUCIZUMAB-DBLL
     Indication: Choroidal neovascularisation
     Dosage: UNK, Q3MO (EVERY 3 MONTHS)
     Route: 065

REACTIONS (4)
  - Retinal degeneration [Unknown]
  - Detachment of retinal pigment epithelium [Unknown]
  - Vitreous disorder [Unknown]
  - Off label use [Unknown]
